FAERS Safety Report 16197865 (Version 1)
Quarter: 2019Q2

REPORT INFORMATION
  Report Type: Spontaneous
  Country: US (occurrence: US)
  Receive Date: 20190415
  Receipt Date: 20190415
  Transmission Date: 20190711
  Serious: Yes (Life-Threatening, Hospitalization, Other)
  Sender: FDA-Public Use
  Company Number: US-C B FLEET CO INC-201904-US-000879

PATIENT
  Age: 55 Year
  Sex: Female

DRUGS (1)
  1. BC (ASPIRIN\CAFFEINE) [Suspect]
     Active Substance: ASPIRIN\CAFFEINE
     Indication: HEADACHE
     Dosage: 8 OR MORE A DAY FOR YEARS
     Route: 048

REACTIONS (16)
  - Hallucination [Recovered/Resolved]
  - Vertigo [Recovering/Resolving]
  - Gait disturbance [Recovering/Resolving]
  - Blindness transient [Recovering/Resolving]
  - Confusional state [Recovering/Resolving]
  - Syncope [Recovered/Resolved]
  - Diplopia [Recovering/Resolving]
  - Vision blurred [Recovering/Resolving]
  - Inappropriate schedule of product administration [None]
  - Asthenia [Recovering/Resolving]
  - Motor dysfunction [Recovered/Resolved]
  - Overdose [None]
  - Toxicity to various agents [Recovering/Resolving]
  - Amnesia [Recovering/Resolving]
  - Colour blindness acquired [Recovering/Resolving]
  - Incorrect product administration duration [None]
